FAERS Safety Report 7645752-2 (Version None)
Quarter: 2011Q3

REPORT INFORMATION
  Report Type: 
  Country: None (occurrence: None)
  Receive Date: 20110729
  Receipt Date: 20110724
  Transmission Date: 20111222
  Serious: Yes (Other)
  Sender: FDA-Public Use
  Company Number: US-US-EMD SERONO, INC.-7073243

PATIENT
  Sex: Male

DRUGS (3)
  1. ZOLOFT [Concomitant]
     Indication: DEPRESSION
  2. REBIF [Suspect]
     Indication: PRODUCT USED FOR UNKNOWN INDICATION
     Route: 058
     Dates: start: 20090107
  3. ANTIDEPRESSANTS [Concomitant]
     Indication: DEPRESSION

REACTIONS (2)
  - CRYING [None]
  - SUICIDE ATTEMPT [None]
